FAERS Safety Report 19774647 (Version 1)
Quarter: 2021Q3

REPORT INFORMATION
  Report Type: Spontaneous
  Country: LT (occurrence: LT)
  Receive Date: 20210901
  Receipt Date: 20210901
  Transmission Date: 20211014
  Serious: Yes (Other)
  Sender: FDA-Public Use
  Company Number: LT-NOVOPROD-840810

PATIENT
  Age: 60 Year
  Sex: Female

DRUGS (3)
  1. COVID?19 VACCINE [Concomitant]
     Dosage: UNK
     Route: 065
     Dates: start: 202102
  2. VAGIFEM [Suspect]
     Active Substance: ESTRADIOL
     Indication: UTERINE CERVIX DILATION PROCEDURE
     Dosage: 10 MCG
     Route: 065
     Dates: start: 202107
  3. COVID?19 VACCINE [Concomitant]
     Dosage: UNK
     Route: 065
     Dates: start: 202101

REACTIONS (6)
  - Swelling face [Recovered/Resolved]
  - Off label use [Unknown]
  - Dyspnoea [Recovered/Resolved]
  - Pigmentation disorder [Recovered/Resolved]
  - Hypoaesthesia oral [Recovered/Resolved]
  - Flushing [Recovered/Resolved]

NARRATIVE: CASE EVENT DATE: 202107
